FAERS Safety Report 9058827 (Version 2)
Quarter: 2013Q1

REPORT INFORMATION
  Report Type: Report from Study
  Country: FR (occurrence: FR)
  Receive Date: 20130204
  Receipt Date: 20130212
  Transmission Date: 20140127
  Serious: Yes (Hospitalization, Other)
  Sender: FDA-Public Use
  Company Number: FR-VERTEX PHARMACEUTICALS INC.-000000000000001097

PATIENT
  Age: 54 None
  Sex: Male
  Weight: 82 kg

DRUGS (8)
  1. VX-950 (TELAPREVIR) [Suspect]
     Indication: HEPATITIS C
     Dosage: 750 MG, TID
     Route: 048
     Dates: start: 20110516
  2. COPEGUS [Concomitant]
     Indication: HEPATITIS C
     Dosage: 600 MG, BID
     Route: 048
     Dates: start: 20110516, end: 20120315
  3. PEGASYS [Concomitant]
     Indication: HEPATITIS C
     Dosage: 180 ?G, QW
     Dates: start: 20110516, end: 20120315
  4. LOXEN [Concomitant]
     Indication: HYPERTENSION
     Dosage: 50 MG, BID
     Dates: start: 20121121
  5. SERETIDE [Concomitant]
     Indication: DYSPNOEA
     Dosage: 2 DF, QD
     Dates: start: 20120630
  6. ATENOLOL [Concomitant]
     Indication: HYPERTENSION
     Dosage: 100 MG, QD
     Dates: start: 20121121
  7. ROVALCYTE [Concomitant]
     Indication: PROPHYLAXIS
     Dosage: DOSAGE FORM: TABLETS
     Dates: start: 20121228
  8. BACTRIM [Concomitant]
     Indication: PROPHYLAXIS
     Dosage: DOSAGE FORM: TABLETS
     Dates: start: 20121227

REACTIONS (3)
  - Arrhythmia [Recovered/Resolved]
  - Abdominal pain [Recovered/Resolved]
  - Hepatocellular carcinoma [Recovered/Resolved]
